FAERS Safety Report 4824761-2 (Version None)
Quarter: 2005Q4

REPORT INFORMATION
  Report Type: 
  Country: None (occurrence: None)
  Receive Date: 20051108
  Receipt Date: 20051019
  Transmission Date: 20060501
  Serious: Yes (Hospitalization)
  Sender: FDA-Public Use
  Company Number: 2005BH002637

PATIENT
  Age: 62 Year
  Sex: Male

DRUGS (16)
  1. LORAZEPAM [Suspect]
     Dosage: 7.5 MG
     Dates: start: 20050526, end: 20050817
  2. TAMSULOSIN HCL [Suspect]
     Dosage: 0.4 MG
     Dates: start: 20050707, end: 20050817
  3. RISPERDAL [Suspect]
     Dosage: 8 MG
     Dates: start: 20050525, end: 20050817
  4. ZOLPIDEM TARTRATE [Suspect]
     Dosage: 10 MG
     Dates: start: 20050601, end: 20050817
  5. HALDOL [Concomitant]
  6. AMILORIDE HCL AND HYDROCHLOROTHIAZIDE [Concomitant]
  7. THROMBO ASS [Concomitant]
  8. PSYCHOPAX [Concomitant]
  9. OXCARBAZEPINE [Concomitant]
  10. DOMINAL FORTE [Concomitant]
  11. GEWACALM [Concomitant]
  12. TRITTICO [Concomitant]
  13. LOVENOX [Concomitant]
  14. MOTRIM [Concomitant]
  15. MACROGOL [Concomitant]
  16. PANTOPRAZOLE [Concomitant]

REACTIONS (2)
  - OEDEMA PERIPHERAL [None]
  - VARICOSE VEIN [None]
